FAERS Safety Report 6229343-6 (Version None)
Quarter: 2009Q2

REPORT INFORMATION
  Report Type: 
  Country: None (occurrence: None)
  Receive Date: 20090609
  Receipt Date: 20090117
  Transmission Date: 20091009
  Serious: Yes (Hospitalization)
  Sender: FDA-Public Use
  Company Number: SPV1-2009-00081

PATIENT
  Age: 5 Year
  Sex: Male

DRUGS (4)
  1. DAYTRANA [Suspect]
     Indication: ATTENTION DEFICIT/HYPERACTIVITY DISORDER
     Dosage: 10 MG, 1X/DAY; QD, TRANSDERMAL
     Route: 062
     Dates: start: 20081101
  2. KEPRA (LEVETIRACETAM) [Concomitant]
  3. ALBUTEROL [Concomitant]
  4. RISPERDAL [Concomitant]

REACTIONS (3)
  - OFF LABEL USE [None]
  - PRODUCT QUALITY ISSUE [None]
  - RESPIRATORY SYNCYTIAL VIRUS INFECTION [None]
